FAERS Safety Report 7438144-2 (Version None)
Quarter: 2011Q2

REPORT INFORMATION
  Report Type: 
  Country: None (occurrence: None)
  Receive Date: 20110421
  Receipt Date: 20110421
  Transmission Date: 20111010
  Serious: No
  Sender: FDA-Public Use
  Company Number: None

PATIENT
  Age: 71 Year
  Sex: Female
  Weight: 67.1324 kg

DRUGS (1)
  1. PRAVASTATIN SODIUM [Suspect]
     Indication: BLOOD CHOLESTEROL ABNORMAL
     Dosage: ONE TABLET ONCE AT NIGHT PO
     Route: 048
     Dates: start: 20110101, end: 20110419

REACTIONS (10)
  - MUSCLE TIGHTNESS [None]
  - DYSPEPSIA [None]
  - DIAPHRAGMATIC DISORDER [None]
  - SENSATION OF PRESSURE [None]
  - PAIN IN EXTREMITY [None]
  - ARTHRALGIA [None]
  - CHEST DISCOMFORT [None]
  - PAIN [None]
  - FLATULENCE [None]
  - ERUCTATION [None]
